FAERS Safety Report 9122085 (Version 2)
Quarter: 2013Q2

REPORT INFORMATION
  Report Type: Spontaneous
  Country: FR (occurrence: FR)
  Receive Date: 20130114
  Receipt Date: 20130613
  Transmission Date: 20140414
  Serious: Yes (Hospitalization)
  Sender: FDA-Public Use
  Company Number: FR-ASTRAZENECA-2013SE01531

PATIENT
  Age: 15261 Day
  Sex: Female

DRUGS (8)
  1. XEROQUEL [Suspect]
     Route: 048
     Dates: start: 20120518
  2. CLOPIXOL [Suspect]
     Route: 030
     Dates: start: 20120731, end: 20120809
  3. CLOPIXOL [Suspect]
     Route: 048
     Dates: start: 20120731
  4. CLOPIXOL [Suspect]
     Route: 048
  5. TERCIAN [Suspect]
     Route: 048
  6. TERCIAN [Suspect]
     Route: 048
  7. SERESTA [Concomitant]
  8. LEPTICUR [Concomitant]

REACTIONS (5)
  - Colitis ischaemic [Recovered/Resolved with Sequelae]
  - Colitis ulcerative [Unknown]
  - Gastrointestinal necrosis [Recovered/Resolved with Sequelae]
  - Chest pain [Unknown]
  - Dyspnoea [Unknown]
